FAERS Safety Report 16486761 (Version 2)
Quarter: 2019Q3

REPORT INFORMATION
  Report Type: Report from Study
  Country: JP (occurrence: JP)
  Receive Date: 20190627
  Receipt Date: 20190703
  Transmission Date: 20191004
  Serious: No
  Sender: FDA-Public Use
  Company Number: JP-JNJFOC-20190623608

PATIENT
  Sex: Female

DRUGS (1)
  1. FENTANYL. [Suspect]
     Active Substance: FENTANYL
     Indication: ANAESTHESIA PROCEDURE
     Route: 042

REACTIONS (3)
  - Off label use [Unknown]
  - Exposure during pregnancy [Recovered/Resolved]
  - Product use issue [Unknown]
